FAERS Safety Report 22163946 (Version 2)
Quarter: 2023Q2

REPORT INFORMATION
  Report Type: Spontaneous
  Country: US (occurrence: US)
  Receive Date: 20230402
  Receipt Date: 20230611
  Transmission Date: 20230722
  Serious: No
  Sender: FDA-Public Use
  Company Number: US-drreddys-SPO/USA/23/0161811

PATIENT
  Sex: Female

DRUGS (1)
  1. LEVOCETIRIZINE DIHYDROCHLORIDE [Suspect]
     Active Substance: LEVOCETIRIZINE DIHYDROCHLORIDE
     Indication: Sneezing
     Route: 048
     Dates: start: 20230123, end: 20230223

REACTIONS (2)
  - Drug ineffective [Unknown]
  - Product quality issue [Unknown]
